FAERS Safety Report 25043238 (Version 1)
Quarter: 2025Q1

REPORT INFORMATION
  Report Type: Spontaneous
  Country: CN (occurrence: CN)
  Receive Date: 20250305
  Receipt Date: 20250305
  Transmission Date: 20250408
  Serious: Yes (Hospitalization)
  Sender: ABBVIE
  Company Number: CN-ABBVIE-6153024

PATIENT
  Age: 77 Year
  Sex: Female

DRUGS (18)
  1. VENETOCLAX [Suspect]
     Active Substance: VENETOCLAX
     Indication: Myelosuppression
     Dosage: VENETOCLAX 400 MG D3-D28
     Route: 048
     Dates: start: 20240508, end: 20240602
  2. VENETOCLAX [Suspect]
     Active Substance: VENETOCLAX
     Indication: Myelosuppression
     Dosage: 400 MILLIGRAM
     Route: 048
     Dates: start: 20241216, end: 20241222
  3. VENETOCLAX [Suspect]
     Active Substance: VENETOCLAX
     Indication: Myelosuppression
     Route: 048
     Dates: start: 20240229, end: 20240229
  4. VENETOCLAX [Suspect]
     Active Substance: VENETOCLAX
     Indication: Myelosuppression
     Dosage: VENETOCLAX 400 MG D3-D28
     Route: 048
     Dates: start: 20240301, end: 20240326
  5. VENETOCLAX [Suspect]
     Active Substance: VENETOCLAX
     Indication: Myelosuppression
     Route: 048
     Dates: start: 20240228, end: 20240228
  6. VENETOCLAX [Suspect]
     Active Substance: VENETOCLAX
     Indication: Myelosuppression
     Route: 048
     Dates: start: 20240506, end: 20240506
  7. VENETOCLAX [Suspect]
     Active Substance: VENETOCLAX
     Indication: Myelosuppression
     Route: 048
     Dates: start: 20240507, end: 20240507
  8. VENETOCLAX [Suspect]
     Active Substance: VENETOCLAX
     Indication: Myelosuppression
     Dosage: VENETOCLAX 400 MG D1-D28
     Route: 048
     Dates: start: 20240824, end: 20240920
  9. VENETOCLAX [Suspect]
     Active Substance: VENETOCLAX
     Indication: Myelosuppression
     Dosage: VENETOCLAX 400 MG D1-D28
     Route: 048
     Dates: start: 20240613, end: 20240710
  10. VENETOCLAX [Suspect]
     Active Substance: VENETOCLAX
     Indication: Myelosuppression
     Dosage: VENETOCLAX 400 MG D1-D28
     Route: 048
     Dates: start: 20240716, end: 20240812
  11. VENETOCLAX [Suspect]
     Active Substance: VENETOCLAX
     Indication: Myelosuppression
     Dosage: VENETOCLAX 400 MG D1-D28
     Route: 048
     Dates: start: 20241119, end: 20241216
  12. AZACITIDINE [Suspect]
     Active Substance: AZACITIDINE
     Indication: Myelosuppression
     Dosage: 100 MG, AZACITIDINE 100 MG D1-D7
     Route: 030
     Dates: start: 20241216, end: 20241222
  13. AZACITIDINE [Suspect]
     Active Substance: AZACITIDINE
     Indication: Myelosuppression
     Dosage: 100 MG, AZACITIDINE 100 MG D1-D7
     Route: 030
     Dates: start: 20240228, end: 20240305
  14. AZACITIDINE [Suspect]
     Active Substance: AZACITIDINE
     Indication: Myelosuppression
     Dosage: 100 MG, AZACITIDINE 100 MG D1-D7
     Route: 030
     Dates: start: 20240506, end: 20240512
  15. AZACITIDINE [Suspect]
     Active Substance: AZACITIDINE
     Indication: Myelosuppression
     Dosage: 100 MG, AZACITIDINE 100 MG D1-D7
     Route: 030
     Dates: start: 20240613, end: 20240619
  16. AZACITIDINE [Suspect]
     Active Substance: AZACITIDINE
     Indication: Myelosuppression
     Dosage: 100 MG, AZACITIDINE 100 MG D1-D7
     Route: 030
     Dates: start: 20240716, end: 20240722
  17. AZACITIDINE [Suspect]
     Active Substance: AZACITIDINE
     Indication: Myelosuppression
     Dosage: 100 MG, AZACITIDINE 100 MG D1-D7
     Route: 030
     Dates: start: 20240824, end: 20240830
  18. AZACITIDINE [Suspect]
     Active Substance: AZACITIDINE
     Indication: Myelosuppression
     Dosage: 100 MG, AZACITIDINE 100 MG D1-D7
     Route: 030
     Dates: start: 20241119, end: 20241125

REACTIONS (1)
  - Myelosuppression [Unknown]

NARRATIVE: CASE EVENT DATE: 20250103
